FAERS Safety Report 14659649 (Version 2)
Quarter: 2018Q1

REPORT INFORMATION
  Report Type: Spontaneous
  Country: DE (occurrence: DE)
  Receive Date: 20180320
  Receipt Date: 20180323
  Transmission Date: 20180509
  Serious: Yes (Congenital Anomaly)
  Sender: FDA-Public Use
  Company Number: DE-ASTRAZENECA-2018SE31894

PATIENT
  Age: 1 Day
  Sex: Male
  Weight: 1.1 kg

DRUGS (2)
  1. CANDESARTAN. [Suspect]
     Active Substance: CANDESARTAN
     Indication: ESSENTIAL HYPERTENSION
     Route: 064
  2. CANDESARTAN. [Suspect]
     Active Substance: CANDESARTAN
     Indication: PRODUCT USED FOR UNKNOWN INDICATION
     Route: 064

REACTIONS (7)
  - Hypospadias [Not Recovered/Not Resolved]
  - Endocardial fibrosis [Not Recovered/Not Resolved]
  - Dysmorphism [Not Recovered/Not Resolved]
  - Cardiac hypertrophy [Not Recovered/Not Resolved]
  - Foetal exposure during pregnancy [Unknown]
  - Pulmonary hypoplasia [Not Recovered/Not Resolved]
  - Renal failure [Not Recovered/Not Resolved]
